FAERS Safety Report 5898006-9 (Version None)
Quarter: 2008Q3

REPORT INFORMATION
  Report Type: 
  Country: None (occurrence: None)
  Receive Date: 20080925
  Receipt Date: 20080919
  Transmission Date: 20090109
  Serious: Yes (Hospitalization)
  Sender: FDA-Public Use
  Company Number: US-GILEAD-2008-0018196

PATIENT
  Sex: Male

DRUGS (8)
  1. LETAIRIS [Suspect]
     Indication: PULMONARY HYPERTENSION
     Route: 048
     Dates: start: 20071120
  2. COUMADIN [Suspect]
     Indication: PULMONARY HYPERTENSION
  3. TREPROSTINIL [Concomitant]
     Indication: PULMONARY HYPERTENSION
  4. SILDENAFIL CITRATE [Concomitant]
     Indication: PULMONARY HYPERTENSION
  5. DIGOXIN [Concomitant]
  6. COLCHICINE [Concomitant]
  7. ALLOPURINOL [Concomitant]
  8. NEURONTIN [Concomitant]

REACTIONS (1)
  - SUBDURAL HAEMATOMA [None]
